FAERS Safety Report 8775129 (Version 1)
Quarter: 2012Q4

REPORT INFORMATION
  Report Type: 
  Country: DE (occurrence: DE)
  Receive Date: 20120910
  Receipt Date: 20120910
  Transmission Date: 20130627
  Serious: Yes (Congenital Anomaly)
  Sender: FDA-Public Use
  Company Number: DE-ROCHE-1004497

PATIENT

DRUGS (6)
  1. TORASEMIDE [Suspect]
     Indication: PRODUCT USED FOR UNKNOWN INDICATION
     Route: 064
  2. FALITHROM [Suspect]
     Indication: PULMONARY EMBOLISM
     Route: 064
  3. RAMIPRIL [Suspect]
     Indication: GLOMERULONEPHRITIS MEMBRANOUS
     Route: 064
  4. CICLOSPORIN [Suspect]
     Indication: GLOMERULONEPHRITIS MEMBRANOUS
     Route: 064
  5. CLEXANE [Concomitant]
     Indication: DEEP VEIN THROMBOSIS
     Route: 064
  6. PREDNISOLONE [Concomitant]
     Indication: SYSTEMIC LUPUS ERYTHEMATOSUS
     Route: 064

REACTIONS (5)
  - Fallot^s tetralogy [Not Recovered/Not Resolved]
  - Foetal exposure during pregnancy [Not Recovered/Not Resolved]
  - Single umbilical artery [None]
  - Ultrasound antenatal screen abnormal [None]
  - Maternal drugs affecting foetus [None]
